FAERS Safety Report 9859219 (Version 3)
Quarter: 2014Q1

REPORT INFORMATION
  Report Type: Spontaneous
  Country: KR (occurrence: KR)
  Receive Date: 20140131
  Receipt Date: 20140228
  Transmission Date: 20141002
  Serious: Yes (Death, Hospitalization)
  Sender: FDA-Public Use
  Company Number: KR-ACTELION-A-CH2014-94307

PATIENT
  Age: 44 Year
  Sex: Male
  Weight: 55.45 kg

DRUGS (8)
  1. TRACLEER [Suspect]
     Indication: PULMONARY HYPERTENSION
     Dosage: 125 MG, BID
     Route: 048
     Dates: start: 20131222, end: 20140206
  2. TRACLEER [Suspect]
     Dosage: 62.5 MG, BID
     Route: 048
     Dates: start: 20131122, end: 20131221
  3. MOBIC [Concomitant]
     Dosage: 7.5 MG, UNK
     Dates: start: 20131124
  4. MUCOSTA [Concomitant]
     Dosage: 100 MG, UNK
     Dates: start: 20131123
  5. WARFARIN [Concomitant]
     Dosage: 2 MG, UNK
     Dates: start: 20131124, end: 20140205
  6. DIGOXIN [Concomitant]
     Dosage: 0.25 MG, UNK
     Dates: start: 20131122, end: 20140205
  7. LASIX [Concomitant]
     Dosage: 40 MG, UNK
     Dates: start: 20131001, end: 20140205
  8. TRITACE [Concomitant]
     Indication: HYPERTENSION
     Dosage: 1.25 MG, UNK
     Dates: end: 20140205

REACTIONS (7)
  - Death [Fatal]
  - Gout [Recovered/Resolved]
  - Arthralgia [Recovered/Resolved]
  - Pain [Recovered/Resolved]
  - Swelling [Recovered/Resolved]
  - Tenderness [Recovered/Resolved]
  - Fall [Fatal]
